FAERS Safety Report 24460462 (Version 1)
Quarter: 2024Q4

REPORT INFORMATION
  Report Type: Report from Study
  Country: US (occurrence: US)
  Receive Date: 20241018
  Receipt Date: 20241018
  Transmission Date: 20250114
  Serious: No
  Sender: ROCHE
  Company Number: US-ROCHE-3559227

PATIENT
  Age: 67 Year
  Sex: Male
  Weight: 86.18 kg

DRUGS (2)
  1. RITUXAN [Suspect]
     Active Substance: RITUXIMAB
     Indication: Rheumatoid arthritis
     Dosage: ONGOING :YES INFUSE 1000MG INTRAVENOUSLY ON DAY(S) 1 AND DAY(S) 15 AS DIRECTED
     Route: 042
     Dates: start: 202310
  2. RITUXAN [Suspect]
     Active Substance: RITUXIMAB
     Dosage: THERAPY END DAE: 22-MAR-2025?500 MG SINGLE-USE VIAL, EVERY 2 WEEKS * 2 EVERY 24 WEEKS, DATE OF SERVI
     Route: 042
     Dates: start: 20240322

REACTIONS (1)
  - Lymphadenopathy [Not Recovered/Not Resolved]

NARRATIVE: CASE EVENT DATE: 20240325
